FAERS Safety Report 21107214 (Version 1)
Quarter: 2022Q3

REPORT INFORMATION
  Report Type: Spontaneous
  Country: US (occurrence: None)
  Receive Date: 20220720
  Receipt Date: 20220720
  Transmission Date: 20221026
  Serious: No
  Sender: FDA-Public Use
  Company Number: None

PATIENT

DRUGS (1)
  1. NOVOSEVEN RT [Suspect]
     Active Substance: COAGULATION FACTOR VIIA RECOMBINANT HUMAN
     Indication: Product used for unknown indication

REACTIONS (8)
  - Product administration error [None]
  - Wrong technique in product usage process [None]
  - Device use issue [None]
  - Device connection issue [None]
  - Product preparation issue [None]
  - Wrong technique in product usage process [None]
  - Product preparation error [None]
  - Product design issue [None]
